FAERS Safety Report 12890041 (Version 1)
Quarter: 2016Q4

REPORT INFORMATION
  Report Type: Spontaneous
  Country: FR (occurrence: FR)
  Receive Date: 20161027
  Receipt Date: 20161027
  Transmission Date: 20170207
  Serious: Yes (Death, Other)
  Sender: FDA-Public Use
  Company Number: FR-ALEXION PHARMACEUTICALS INC.-A201608124

PATIENT
  Age: 48 Year

DRUGS (1)
  1. SOLIRIS [Suspect]
     Active Substance: ECULIZUMAB
     Indication: HAEMOLYTIC URAEMIC SYNDROME
     Dosage: UNK, 5 TO 6 COURSES
     Route: 042

REACTIONS (2)
  - Graft versus host disease [Fatal]
  - General physical health deterioration [Fatal]

NARRATIVE: CASE EVENT DATE: 201607
